FAERS Safety Report 14230955 (Version 1)
Quarter: 2017Q4

REPORT INFORMATION
  Report Type: Spontaneous
  Country: US (occurrence: US)
  Receive Date: 20171128
  Receipt Date: 20171128
  Transmission Date: 20180321
  Serious: No
  Sender: FDA-Public Use
  Company Number: US-JNJFOC-20171117785

PATIENT
  Age: 77 Year
  Sex: Female

DRUGS (7)
  1. ZYRTEC [Suspect]
     Active Substance: CETIRIZINE HYDROCHLORIDE
     Indication: HYPERSENSITIVITY
     Dosage: HALF ZYRTEC AT NIGHT
     Route: 065
     Dates: start: 20171025
  2. ZEJULA [Concomitant]
     Active Substance: NIRAPARIB
     Indication: BREAST CANCER
     Route: 048
     Dates: start: 20170817, end: 20170907
  3. ZYRTEC [Suspect]
     Active Substance: CETIRIZINE HYDROCHLORIDE
     Indication: NASAL CONGESTION
     Dosage: HALF ZYRTEC AT NIGHT
     Route: 065
     Dates: start: 20171025
  4. ZYRTEC [Suspect]
     Active Substance: CETIRIZINE HYDROCHLORIDE
     Indication: UPPER-AIRWAY COUGH SYNDROME
     Dosage: HALF ZYRTEC AT NIGHT
     Route: 065
     Dates: start: 20171025
  5. ZEJULA [Concomitant]
     Active Substance: NIRAPARIB
     Indication: BREAST CANCER
     Route: 048
     Dates: start: 20170922
  6. ZEJULA [Concomitant]
     Active Substance: NIRAPARIB
     Indication: FALLOPIAN TUBE CANCER
     Route: 048
     Dates: start: 20170922
  7. ZEJULA [Concomitant]
     Active Substance: NIRAPARIB
     Indication: FALLOPIAN TUBE CANCER
     Route: 048
     Dates: start: 20170817, end: 20170907

REACTIONS (3)
  - Somnolence [Unknown]
  - Wrong technique in product usage process [Unknown]
  - Product use in unapproved indication [Unknown]

NARRATIVE: CASE EVENT DATE: 20171025
